FAERS Safety Report 9063630 (Version 1)
Quarter: 2013Q1

REPORT INFORMATION
  Report Type: Report from Study
  Country: US (occurrence: US)
  Receive Date: 20130131
  Receipt Date: 20130131
  Transmission Date: 20140127
  Serious: No
  Sender: FDA-Public Use
  Company Number: US-ABBOTT-12P-163-1006652-00

PATIENT
  Sex: Male
  Weight: 69.01 kg

DRUGS (4)
  1. HUMIRA [Suspect]
     Indication: CROHN^S DISEASE
     Dates: start: 201207
  2. MERCAPTOPURINE [Concomitant]
     Indication: CROHN^S DISEASE
  3. LEVOTHYROXINE [Concomitant]
     Indication: THYROID DISORDER
  4. ZOLOFT [Concomitant]
     Indication: DEPRESSION

REACTIONS (3)
  - Injection site swelling [Recovered/Resolved]
  - Injection site erythema [Recovered/Resolved]
  - Injection site pruritus [Recovered/Resolved]
